FAERS Safety Report 4870290-X (Version None)
Quarter: 2005Q4

REPORT INFORMATION
  Report Type: 
  Country: None (occurrence: None)
  Receive Date: 20051228
  Receipt Date: 20051102
  Transmission Date: 20060501
  Serious: No
  Sender: FDA-Public Use
  Company Number: MK200512-0361-1

PATIENT
  Age: 44 Year
  Sex: Female

DRUGS (1)
  1. OPTIRAY 300 [Suspect]
     Indication: ARTERIOGRAM
     Dosage: ONE TIME, IA
     Dates: start: 20051024, end: 20051024

REACTIONS (2)
  - ANAL SPHINCTER ATONY [None]
  - GRAND MAL CONVULSION [None]
